FAERS Safety Report 9122820 (Version 1)
Quarter: 2013Q1

REPORT INFORMATION
  Report Type: Spontaneous
  Country: US (occurrence: None)
  Receive Date: 20130225
  Receipt Date: 20130225
  Transmission Date: 20140127
  Serious: Yes (Other)
  Sender: FDA-Public Use
  Company Number: None

PATIENT
  Age: 14 Year
  Sex: Female
  Weight: 49.9 kg

DRUGS (1)
  1. GENERESS FE [Suspect]
     Indication: DYSMENORRHOEA
     Dosage: DAILY  PO
     Route: 048
     Dates: start: 20121030, end: 20130130

REACTIONS (2)
  - Mood swings [None]
  - Obsessive-compulsive disorder [None]
